FAERS Safety Report 16027202 (Version 2)
Quarter: 2019Q2

REPORT INFORMATION
  Report Type: Report from Study
  Country: None (occurrence: PT)
  Receive Date: 20190303
  Receipt Date: 20190402
  Transmission Date: 20190711
  Serious: Yes (Other)
  Sender: FDA-Public Use
  Company Number: PT-ABBVIE-19K-130-2686765-00

PATIENT
  Age: 41 Year
  Sex: Female

DRUGS (2)
  1. HUMIRA [Suspect]
     Active Substance: ADALIMUMAB
     Indication: PSORIATIC ARTHROPATHY
     Route: 058
     Dates: start: 20180606, end: 201812
  2. SALOFALK [MESALAZINE] [Concomitant]
     Active Substance: MESALAMINE
     Indication: CROHN^S DISEASE
     Route: 048

REACTIONS (5)
  - Meniscus injury [Not Recovered/Not Resolved]
  - Chondritis [Not Recovered/Not Resolved]
  - Limb injury [Not Recovered/Not Resolved]
  - Road traffic accident [Unknown]
  - Chest injury [Not Recovered/Not Resolved]

NARRATIVE: CASE EVENT DATE: 201811
